FAERS Safety Report 25046803 (Version 1)
Quarter: 2025Q1

REPORT INFORMATION
  Report Type: Other
  Country: JO (occurrence: JO)
  Receive Date: 20250306
  Receipt Date: 20250306
  Transmission Date: 20250408
  Serious: Yes (Other)
  Sender: CREEKWOOD PHARMACEUTICALS LLC
  Company Number: JO-Creekwood Pharmaceuticals LLC-2172367

PATIENT
  Age: 53 Year
  Sex: Female

DRUGS (7)
  1. FENOFIBRATE [Suspect]
     Active Substance: FENOFIBRATE
     Indication: Hyperlipidaemia
  2. Cobalamin [vitamin B12] [Concomitant]
  3. LANSOPRAZOLE [Concomitant]
     Active Substance: LANSOPRAZOLE
  4. ASPIRIN [Concomitant]
     Active Substance: ASPIRIN
  5. VITAMIN D [Concomitant]
     Active Substance: VITAMIN D NOS
  6. SAXAGLIPTIN [Concomitant]
     Active Substance: SAXAGLIPTIN
  7. METFORMIN [Concomitant]
     Active Substance: METFORMIN HYDROCHLORIDE

REACTIONS (1)
  - Subacute cutaneous lupus erythematosus [Recovered/Resolved]
